FAERS Safety Report 4703772-1 (Version None)
Quarter: 2005Q2

REPORT INFORMATION
  Report Type: 
  Country: None (occurrence: None)
  Receive Date: 20050628
  Receipt Date: 20050617
  Transmission Date: 20051028
  Serious: Yes (Other)
  Sender: FDA-Public Use
  Company Number: 2005090225

PATIENT
  Age: 78 Year
  Sex: Female
  Weight: 77.1115 kg

DRUGS (3)
  1. NORVASC [Suspect]
     Indication: HYPERTENSION
     Dosage: 5 MG (5 MG, 1 IN 1 D), ORAL
     Route: 048
  2. HYZAAR [Concomitant]
  3. ULTRAM [Concomitant]

REACTIONS (2)
  - DEMENTIA ALZHEIMER'S TYPE [None]
  - MENINGIOMA [None]
